FAERS Safety Report 10783892 (Version 4)
Quarter: 2015Q2

REPORT INFORMATION
  Report Type: Report from Study
  Country: US (occurrence: US)
  Receive Date: 20150210
  Receipt Date: 20150630
  Transmission Date: 20150821
  Serious: Yes (Other)
  Sender: FDA-Public Use
  Company Number: US-BRISTOL-MYERS SQUIBB COMPANY-BMS-2015-005977

PATIENT
  Age: 19 Year
  Sex: Female

DRUGS (3)
  1. ATAZANAVIR SULFATE [Suspect]
     Active Substance: ATAZANAVIR SULFATE
     Indication: ANTIRETROVIRAL THERAPY
     Dosage: 300 MG, QD
     Route: 048
     Dates: start: 20140417
  2. TRUVADA [Concomitant]
     Active Substance: EMTRICITABINE\TENOFOVIR DISOPROXIL FUMARATE
     Indication: ANTIRETROVIRAL THERAPY
     Dosage: 1 DF= 1 TAB, UNK
     Route: 048
     Dates: start: 20140417
  3. COMBIVIR [Concomitant]
     Active Substance: LAMIVUDINE\ZIDOVUDINE
     Indication: ANTIRETROVIRAL THERAPY
     Dosage: 1 DF= 2 TAB, UNK
     Route: 048
     Dates: start: 20140417

REACTIONS (3)
  - Amniotic cavity infection [Unknown]
  - Maternal exposure during pregnancy [Recovered/Resolved]
  - Stillbirth [Unknown]

NARRATIVE: CASE EVENT DATE: 20141112
